FAERS Safety Report 23524159 (Version 1)
Quarter: 2024Q1

REPORT INFORMATION
  Report Type: Spontaneous
  Country: US (occurrence: US)
  Receive Date: 20240214
  Receipt Date: 20240214
  Transmission Date: 20240409
  Serious: No
  Sender: FDA-Public Use
  Company Number: US-PFIZER INC-202400038728

PATIENT
  Age: 77 Year
  Sex: Female
  Weight: 102.06 kg

DRUGS (2)
  1. NURTEC ODT [Suspect]
     Active Substance: RIMEGEPANT SULFATE
     Indication: Headache
     Dosage: UNK
  2. UBRELVY [Suspect]
     Active Substance: UBROGEPANT
     Dosage: UNK

REACTIONS (9)
  - Skin reaction [Unknown]
  - Pruritus [Unknown]
  - Pruritus genital [Unknown]
  - Vulvovaginal pruritus [Unknown]
  - Ocular hyperaemia [Unknown]
  - Eyelid irritation [Unknown]
  - Erythema [Unknown]
  - Off label use [Unknown]
  - Drug effective for unapproved indication [Unknown]
